FAERS Safety Report 16179669 (Version 1)
Quarter: 2019Q2

REPORT INFORMATION
  Report Type: Spontaneous
  Country: US (occurrence: US)
  Receive Date: 20190410
  Receipt Date: 20190410
  Transmission Date: 20190711
  Serious: No
  Sender: FDA-Public Use
  Company Number: US-FERRINGPH-2019FE00341

PATIENT
  Age: 78 Year
  Sex: Male
  Weight: 68.27 kg

DRUGS (1)
  1. FIRMAGON [Suspect]
     Active Substance: DEGARELIX ACETATE
     Indication: PROSTATE CANCER
     Dosage: 80 MG, MONTHLY
     Route: 065
     Dates: start: 20190118

REACTIONS (4)
  - Injection site erythema [Unknown]
  - Hot flush [Recovered/Resolved]
  - Wrong technique in product usage process [Unknown]
  - Injection site induration [Unknown]

NARRATIVE: CASE EVENT DATE: 201901
